FAERS Safety Report 6724218-8 (Version None)
Quarter: 2010Q2

REPORT INFORMATION
  Report Type: 
  Country: None (occurrence: None)
  Receive Date: 20100513
  Receipt Date: 20100511
  Transmission Date: 20101027
  Serious: Yes (Other)
  Sender: FDA-Public Use
  Company Number: US-MERCK-1003USA02099

PATIENT
  Age: 7 Year
  Sex: Female

DRUGS (6)
  1. DECADRON [Suspect]
     Route: 048
  2. IFOSFAMIDE [Suspect]
     Indication: OSTEOSARCOMA METASTATIC
     Dosage: 2.8 G/M2 OVER 4 HR DAILY FOR 5 DAYS
     Route: 065
  3. MESNA [Concomitant]
     Route: 065
  4. ONDANSETRON [Concomitant]
     Route: 065
  5. LORAZEPAM [Concomitant]
     Route: 065
  6. DRONABINOL [Concomitant]
     Route: 065

REACTIONS (4)
  - BALLISMUS [None]
  - ENCEPHALOPATHY [None]
  - NEUROTOXICITY [None]
  - URINARY INCONTINENCE [None]
